FAERS Safety Report 13926738 (Version 1)
Quarter: 2017Q3

REPORT INFORMATION
  Report Type: Spontaneous
  Country: NL (occurrence: NL)
  Receive Date: 20170901
  Receipt Date: 20170901
  Transmission Date: 20171127
  Serious: Yes (Other)
  Sender: FDA-Public Use
  Company Number: NL-009507513-1707NLD009669

PATIENT
  Sex: Female
  Weight: 58 kg

DRUGS (3)
  1. SINEMET [Suspect]
     Active Substance: CARBIDOPA\LEVODOPA
     Indication: PARKINSON^S DISEASE
     Dosage: 62,5 LS, EGG YELLOW, SMALL OVAL WITH SCORE LINE, AS THIS TABLET WAS LESS POWDERY
     Route: 048
  2. SINEMET [Suspect]
     Active Substance: CARBIDOPA\LEVODOPA
     Indication: PARKINSON^S DISEASE
     Dosage: UNK
     Route: 048
  3. SINEMET [Suspect]
     Active Substance: CARBIDOPA\LEVODOPA
     Dosage: 62,5 (WITH 520 ON ONE SIDE), OVAL TABLET, SCORE LINE, POWDERY
     Route: 048

REACTIONS (15)
  - On and off phenomenon [Unknown]
  - Chest pain [Unknown]
  - Sleep disorder [Unknown]
  - Urinary incontinence [Unknown]
  - Heart rate increased [Unknown]
  - Adverse event [Unknown]
  - Dizziness [Unknown]
  - Akinesia [Unknown]
  - Drug effect variable [Unknown]
  - Gait disturbance [Unknown]
  - Lacrimation increased [Unknown]
  - Hypotension [Unknown]
  - Pruritus [Unknown]
  - Malaise [Unknown]
  - Dyskinesia [Unknown]
